FAERS Safety Report 4467125-6 (Version None)
Quarter: 2004Q4

REPORT INFORMATION
  Report Type: 
  Country: None (occurrence: None)
  Receive Date: 20041006
  Receipt Date: 20040924
  Transmission Date: 20050328
  Serious: Yes (Hospitalization)
  Sender: FDA-Public Use
  Company Number: HQWYE900023DEC03

PATIENT
  Sex: Male

DRUGS (5)
  1. ETANERCEPT [Suspect]
     Indication: RHEUMATOID ARTHRITIS
     Route: 058
  2. ATENOLOL [Concomitant]
     Dosage: 25 MG DAILY
     Route: 048
     Dates: start: 20010419
  3. SORBITOL [Concomitant]
     Dosage: AS NEEDED
     Dates: start: 20011215
  4. PARACETAMOL [Concomitant]
     Dosage: 500 MG AS NEEDED
     Route: 048
     Dates: start: 20010615
  5. DICLOFENAC [Concomitant]
     Dosage: 50 MG AS NEEDED
     Route: 048

REACTIONS (1)
  - GALLBLADDER DISORDER [None]
